FAERS Safety Report 5251230-0 (Version None)
Quarter: 2007Q1

REPORT INFORMATION
  Report Type: 
  Country: None (occurrence: None)
  Receive Date: 20070228
  Receipt Date: 20061211
  Transmission Date: 20070707
  Serious: No
  Sender: FDA-Public Use
  Company Number: US-GLAXOSMITHKLINE-A0631169A

PATIENT
  Age: 48 Year
  Sex: Male

DRUGS (5)
  1. LAMICTAL [Suspect]
     Indication: BIPOLAR DISORDER
     Dosage: 200MG PER DAY
     Route: 048
  2. GEODON [Concomitant]
  3. TRAZODONE HCL [Concomitant]
  4. WELLBUTRIN [Concomitant]
  5. TRICOR [Concomitant]

REACTIONS (1)
  - RASH ERYTHEMATOUS [None]
